FAERS Safety Report 14304670 (Version 2)
Quarter: 2018Q1

REPORT INFORMATION
  Report Type: Spontaneous
  Country: BR (occurrence: BR)
  Receive Date: 20171219
  Receipt Date: 20180126
  Transmission Date: 20180509
  Serious: Yes (Other)
  Sender: FDA-Public Use
  Company Number: BR-OTSUKA-12226569

PATIENT
  Age: 36 Year
  Sex: Female

DRUGS (1)
  1. ARIPIPRAZOLE. [Suspect]
     Active Substance: ARIPIPRAZOLE
     Indication: SCHIZOPHRENIA
     Dosage: 1 TABLET
     Route: 048
     Dates: start: 200303

REACTIONS (6)
  - Throat irritation [Unknown]
  - Hypersensitivity [Unknown]
  - Erythema [Unknown]
  - Drug administration error [Unknown]
  - Face oedema [Unknown]
  - Medication error [Recovered/Resolved]
